FAERS Safety Report 20152413 (Version 2)
Quarter: 2021Q4

REPORT INFORMATION
  Report Type: Spontaneous
  Country: US (occurrence: US)
  Receive Date: 20211206
  Receipt Date: 20211227
  Transmission Date: 20220303
  Serious: Yes (Other)
  Sender: FDA-Public Use
  Company Number: US-PFIZER INC-202101654952

PATIENT
  Age: 70 Year
  Sex: Male
  Weight: 102.5 kg

DRUGS (10)
  1. XELJANZ XR [Suspect]
     Active Substance: TOFACITINIB CITRATE
     Indication: Ankylosing spondylitis
     Dosage: 11 MG, DAILY
     Dates: start: 2020, end: 2021
  2. ROSUVASTATIN [Concomitant]
     Active Substance: ROSUVASTATIN
     Dosage: 40 MG (SEVERAL YEARS)
  3. LEVOTHYROXINE [Concomitant]
     Active Substance: LEVOTHYROXINE
     Dosage: 137 MG (SEVERAL YEARS)
  4. HUMALOG [Concomitant]
     Active Substance: INSULIN LISPRO
     Dosage: VIA PUMPS (SEVERAL YEARS )
  5. ALLOPURINOL [Concomitant]
     Active Substance: ALLOPURINOL
     Dosage: 300 MG (SEVERAL YEARS)
  6. TOPROL XL [Concomitant]
     Active Substance: METOPROLOL SUCCINATE
     Dosage: 25 UNK (SEVERAL YEARS)
  7. VALSARTAN [Concomitant]
     Active Substance: VALSARTAN
     Dosage: 320 MG (SEVERAL YEARS)
  8. FENOFIBRATE [Concomitant]
     Active Substance: FENOFIBRATE
     Dosage: 160 MG (SEVERAL YEARS)
  9. ASPIRIN [Concomitant]
     Active Substance: ASPIRIN
     Dosage: 81 MG (SEVERAL YEARS)
  10. VASCEPA [Concomitant]
     Active Substance: ICOSAPENT ETHYL
     Dosage: 4 G, DAILY (SEVERAL YEARS)

REACTIONS (2)
  - Diverticulitis [Not Recovered/Not Resolved]
  - Pain [Not Recovered/Not Resolved]

NARRATIVE: CASE EVENT DATE: 20200101
